FAERS Safety Report 7213953-3 (Version None)
Quarter: 2011Q1

REPORT INFORMATION
  Report Type: 
  Country: None (occurrence: None)
  Receive Date: 20110106
  Receipt Date: 20110103
  Transmission Date: 20110831
  Serious: Yes (Other)
  Sender: FDA-Public Use
  Company Number: FR-MERCK-1101FRA00005

PATIENT
  Age: 35 Year
  Sex: Male

DRUGS (4)
  1. KETOPROFEN [Concomitant]
     Indication: PAIN
     Route: 048
  2. DICLOFENAC [Concomitant]
     Indication: PAIN
     Route: 061
  3. BUDESONIDE AND FORMOTEROL FUMARATE [Concomitant]
     Indication: ASTHMA
     Route: 055
     Dates: end: 20100901
  4. NOROXIN [Suspect]
     Indication: EPIDIDYMITIS
     Route: 048
     Dates: start: 20100130, end: 20100217

REACTIONS (4)
  - MYALGIA [None]
  - TENDON DISORDER [None]
  - PARAESTHESIA [None]
  - NEUROPATHY PERIPHERAL [None]
